FAERS Safety Report 13058124 (Version 2)
Quarter: 2017Q1

REPORT INFORMATION
  Report Type: Report from Study
  Country: DE (occurrence: DE)
  Receive Date: 20161223
  Receipt Date: 20170113
  Transmission Date: 20170428
  Serious: Yes (Other)
  Sender: FDA-Public Use
  Company Number: DE-ROCHE-1870812

PATIENT
  Age: 71 Year
  Sex: Male
  Weight: 108 kg

DRUGS (5)
  1. ENBREL [Concomitant]
     Active Substance: ETANERCEPT
     Route: 058
  2. PREDNISOLON [Concomitant]
     Active Substance: PREDNISOLONE
     Route: 048
  3. TOCILIZUMAB [Suspect]
     Active Substance: TOCILIZUMAB
     Indication: RHEUMATOID ARTHRITIS
     Dosage: ON 26/MAR/2015, RECEIVED MOST RECENT DOSE.
     Route: 058
     Dates: start: 20150309
  4. METHOTREXATE (METHOTREXATE SODIUM) [Concomitant]
     Active Substance: METHOTREXATE SODIUM
     Route: 048
  5. L-THYROXIN [Concomitant]
     Active Substance: LEVOTHYROXINE SODIUM
     Route: 048

REACTIONS (1)
  - Adenocarcinoma [Recovering/Resolving]

NARRATIVE: CASE EVENT DATE: 20161013
